FAERS Safety Report 7353398-9 (Version None)
Quarter: 2011Q1

REPORT INFORMATION
  Report Type: 
  Country: None (occurrence: None)
  Receive Date: 20110304
  Receipt Date: 20110217
  Transmission Date: 20110831
  Serious: Yes (Disabling, Other)
  Sender: FDA-Public Use
  Company Number: 20110144

PATIENT
  Age: 10 Year
  Sex: Female

DRUGS (1)
  1. PHENYTOIN SODIUM [Suspect]

REACTIONS (2)
  - STEVENS-JOHNSON SYNDROME [None]
  - CONJUNCTIVITIS [None]
